FAERS Safety Report 8517627-8 (Version None)
Quarter: 2012Q3

REPORT INFORMATION
  Report Type: 
  Country: None (occurrence: None)
  Receive Date: 20120718
  Receipt Date: 20120713
  Transmission Date: 20120928
  Serious: Yes (Other)
  Sender: FDA-Public Use
  Company Number: FI-PFIZER INC-2012168795

PATIENT
  Sex: Female

DRUGS (9)
  1. PANACOD [Concomitant]
     Dosage: UNK
  2. GASTERIX [Concomitant]
     Dosage: UNK
  3. CALCIUM CARBONATE [Concomitant]
     Dosage: UNK
  4. NUELIN  DEPOT [Concomitant]
     Dosage: UNK
  5. SPIRIVA [Concomitant]
     Dosage: UNK
  6. FORTEO [Concomitant]
     Dosage: UNK
  7. SULFASALAZINE [Suspect]
     Indication: ARTHRITIS
     Dosage: UNK
     Dates: start: 20120414, end: 20120601
  8. PREDNISOLONE [Concomitant]
     Dosage: UNK
  9. FLUTICASONE PROPIONATE/SALMETEROL [Concomitant]
     Dosage: UNK

REACTIONS (5)
  - DRY SKIN [None]
  - SKIN EXFOLIATION [None]
  - MELANOCYTIC NAEVUS [None]
  - SKIN HAEMORRHAGE [None]
  - MOUTH HAEMORRHAGE [None]
